FAERS Safety Report 6852019-9 (Version None)
Quarter: 2010Q3

REPORT INFORMATION
  Report Type: 
  Country: None (occurrence: None)
  Receive Date: 20100717
  Receipt Date: 20071104
  Transmission Date: 20110219
  Serious: No
  Sender: FDA-Public Use
  Company Number: US-PFIZER INC-2007094318

PATIENT
  Sex: Female

DRUGS (13)
  1. CHANTIX [Suspect]
     Indication: SMOKING CESSATION THERAPY
     Dosage: EVERY DAY
     Dates: start: 20070101
  2. CHONDROITIN/GLUCOSAMINE [Concomitant]
  3. DYAZIDE [Concomitant]
  4. METOPROLOL [Concomitant]
  5. ALLEGRA [Concomitant]
  6. LEXAPRO [Concomitant]
  7. ACETYLSALICYLIC ACID [Concomitant]
  8. MULTI-VITAMINS [Concomitant]
  9. ESTROVEN [Concomitant]
  10. FLEXERIL [Concomitant]
  11. ELAVIL [Concomitant]
  12. PREVACID [Concomitant]
  13. OXYCODONE HCL [Concomitant]

REACTIONS (4)
  - ABNORMAL DREAMS [None]
  - INSOMNIA [None]
  - NERVOUSNESS [None]
  - NIGHTMARE [None]
